FAERS Safety Report 7438455-0 (Version None)
Quarter: 2011Q2

REPORT INFORMATION
  Report Type: 
  Country: None (occurrence: None)
  Receive Date: 20110426
  Receipt Date: 20110422
  Transmission Date: 20111010
  Serious: No
  Sender: FDA-Public Use
  Company Number: US-TEVA-277982USA

PATIENT
  Sex: Female

DRUGS (3)
  1. AZILECT [Suspect]
     Indication: TREMOR
  2. AZILECT [Suspect]
     Indication: PARKINSON'S DISEASE
     Route: 048
     Dates: start: 20110401, end: 20110419
  3. ACETYLSALICYLIC ACID SRT [Concomitant]

REACTIONS (2)
  - FACE OEDEMA [None]
  - HEADACHE [None]
